FAERS Safety Report 6483250-2 (Version None)
Quarter: 2009Q4

REPORT INFORMATION
  Report Type: 
  Country: None (occurrence: None)
  Receive Date: 20091209
  Receipt Date: 20091130
  Transmission Date: 20100525
  Serious: Yes (Hospitalization)
  Sender: FDA-Public Use
  Company Number: US-ELI_LILLY_AND_COMPANY-US200911005384

PATIENT
  Sex: Female

DRUGS (8)
  1. FORTEO [Suspect]
     Indication: OSTEOPOROSIS
     Dosage: UNK, UNKNOWN
     Dates: start: 20091006, end: 20091108
  2. CYMBALTA [Concomitant]
     Indication: DEPRESSION
     Dosage: 60 MG, EACH MORNING
     Dates: start: 20090101
  3. CYMBALTA [Concomitant]
     Dosage: 30 MG, EACH EVENING
  4. ANTIDEPRESSANTS [Concomitant]
     Indication: DEPRESSION
     Dosage: UNK, UNKNOWN
  5. HYDROCODONE [Concomitant]
  6. CRESTOR [Concomitant]
     Dosage: 5 MG, DAILY (1/D)
  7. HYDROCORT [Concomitant]
     Dosage: 5 MG, DAILY (1/D)
  8. ZOLPIDEM [Concomitant]

REACTIONS (13)
  - ABDOMINAL PAIN UPPER [None]
  - BONE PAIN [None]
  - FACIAL PAIN [None]
  - FEELING HOT [None]
  - GAIT DISTURBANCE [None]
  - HYPOPHAGIA [None]
  - MOBILITY DECREASED [None]
  - MUSCLE SPASMS [None]
  - MUSCULOSKELETAL STIFFNESS [None]
  - NAUSEA [None]
  - PAIN [None]
  - SUICIDAL IDEATION [None]
  - VOMITING [None]
